FAERS Safety Report 25986833 (Version 1)
Quarter: 2025Q4

REPORT INFORMATION
  Report Type: Spontaneous
  Country: US (occurrence: US)
  Receive Date: 20251102
  Receipt Date: 20251102
  Transmission Date: 20260117
  Serious: Yes (Disabling, Other)
  Sender: CELLTRION
  Company Number: US-CELLTRION INC.-2025US003150

PATIENT

DRUGS (3)
  1. INFLECTRA [Suspect]
     Active Substance: INFLIXIMAB-DYYB
     Indication: Colitis ulcerative
     Dosage: 5 MG EVERY 6 WEEKS (5 MG/KG, EVERY 6 WEEKS)
     Route: 030
     Dates: start: 20220915, end: 20230706
  2. IMURAN [Concomitant]
     Active Substance: AZATHIOPRINE
     Indication: Inhibiting antibodies
     Dosage: UNK, QD
  3. IMURAN [Concomitant]
     Active Substance: AZATHIOPRINE
     Indication: Immunomodulatory therapy

REACTIONS (5)
  - Lupus-like syndrome [Recovered/Resolved]
  - Fatigue [Recovered/Resolved]
  - Treatment failure [Unknown]
  - Off label use [Unknown]
  - Off label use [Unknown]

NARRATIVE: CASE EVENT DATE: 20221010
